FAERS Safety Report 23076326 (Version 3)
Quarter: 2024Q2

REPORT INFORMATION
  Report Type: Spontaneous
  Country: CN (occurrence: CN)
  Receive Date: 20231017
  Receipt Date: 20240405
  Transmission Date: 20240716
  Serious: Yes (Hospitalization)
  Sender: FDA-Public Use
  Company Number: CN202309013582

PATIENT
  Age: 67 Year
  Sex: Male
  Weight: 68 kg

DRUGS (10)
  1. BENDAMUSTINE HYDROCHLORIDE [Suspect]
     Active Substance: BENDAMUSTINE HYDROCHLORIDE
     Indication: Chronic lymphocytic leukaemia
     Dosage: 50 MG/M2, CYCLE 1 BR THERAPY
     Route: 042
     Dates: start: 20230426
  2. BENDAMUSTINE HYDROCHLORIDE [Suspect]
     Active Substance: BENDAMUSTINE HYDROCHLORIDE
     Dosage: 50 MG/M2 , CYCLE 2 BR THERAPY
     Route: 042
     Dates: start: 20230524
  3. BENDAMUSTINE HYDROCHLORIDE [Suspect]
     Active Substance: BENDAMUSTINE HYDROCHLORIDE
     Dosage: 50 MG/M2, CYCLE 3 BR THERAPY
     Route: 042
     Dates: start: 20230621
  4. BENDAMUSTINE HYDROCHLORIDE [Suspect]
     Active Substance: BENDAMUSTINE HYDROCHLORIDE
     Dosage: 50 MG/M2, CYCLE 4 BR THERAPY
     Route: 042
     Dates: start: 20230720
  5. BENDAMUSTINE HYDROCHLORIDE [Suspect]
     Active Substance: BENDAMUSTINE HYDROCHLORIDE
     Dosage: 50 MG/M2, CYCLE 5 BR THERAPY
     Route: 042
     Dates: start: 20230819
  6. RITUXIMAB [Suspect]
     Active Substance: RITUXIMAB
     Indication: Chronic lymphocytic leukaemia
     Dosage: 500 MG/M2, CYCLE 1 BR THERAPY
     Route: 042
     Dates: start: 20230426
  7. RITUXIMAB [Suspect]
     Active Substance: RITUXIMAB
     Dosage: 500 MG/M2, CYCLE 2 BR THERAPY
     Route: 042
     Dates: start: 20230524
  8. RITUXIMAB [Suspect]
     Active Substance: RITUXIMAB
     Dosage: 500 MG/M2, CYCLE 3 BR THERAPY
     Route: 042
     Dates: start: 20230621
  9. RITUXIMAB [Suspect]
     Active Substance: RITUXIMAB
     Dosage: 500 MG/M2, CYCLE 4 BR THERAPY
     Route: 042
     Dates: start: 20230720
  10. RITUXIMAB [Suspect]
     Active Substance: RITUXIMAB
     Dosage: 500 MG/M2, CYCLE 5 BR THERAPY
     Route: 042
     Dates: start: 20230819

REACTIONS (2)
  - Bronchitis [Recovered/Resolved]
  - Leukopenia [Recovered/Resolved]

NARRATIVE: CASE EVENT DATE: 20230827
